FAERS Safety Report 17278392 (Version 1)
Quarter: 2020Q1

REPORT INFORMATION
  Report Type: Spontaneous
  Country: US (occurrence: US)
  Receive Date: 20200116
  Receipt Date: 20200116
  Transmission Date: 20200409
  Serious: Yes (Other)
  Sender: FDA-Public Use
  Company Number: US-ASTRAZENECA-2020SE04649

PATIENT
  Age: 81 Year
  Sex: Female

DRUGS (15)
  1. TUMS [Concomitant]
     Active Substance: CALCIUM CARBONATE
  2. VITAMIN D [Concomitant]
     Active Substance: VITAMIN D NOS
  3. ONDANSETRON [Concomitant]
     Active Substance: ONDANSETRON
  4. VENCLEXTA [Suspect]
     Active Substance: VENETOCLAX
     Indication: CHRONIC LYMPHOCYTIC LEUKAEMIA
     Route: 048
     Dates: start: 20190322, end: 2019
  5. VENCLEXTA [Suspect]
     Active Substance: VENETOCLAX
     Indication: LYMPHOCYTIC LEUKAEMIA
     Route: 048
     Dates: start: 201904
  6. MACULAR [Concomitant]
  7. AMBIEN [Concomitant]
     Active Substance: ZOLPIDEM TARTRATE
  8. PRILOSEC [Suspect]
     Active Substance: OMEPRAZOLE MAGNESIUM
     Route: 048
  9. VENCLEXTA [Suspect]
     Active Substance: VENETOCLAX
     Indication: CHRONIC LYMPHOCYTIC LEUKAEMIA
     Route: 048
     Dates: start: 201904
  10. PEPCID [Concomitant]
     Active Substance: FAMOTIDINE
  11. IBGARD [Concomitant]
  12. VENCLEXTA [Suspect]
     Active Substance: VENETOCLAX
     Indication: LYMPHOCYTIC LEUKAEMIA
     Route: 048
     Dates: start: 20190322, end: 2019
  13. ALLOPURINOL. [Concomitant]
     Active Substance: ALLOPURINOL
  14. ACYCLOVER (ACICLOVIR) [Suspect]
     Active Substance: ACYCLOVIR
     Route: 065
  15. DOXYCYCLIN [Concomitant]
     Active Substance: DOXYCYCLINE

REACTIONS (14)
  - Cough [Unknown]
  - Yellow skin [Recovering/Resolving]
  - Sinusitis bacterial [Not Recovered/Not Resolved]
  - Blood creatinine increased [Unknown]
  - Defaecation urgency [Not Recovered/Not Resolved]
  - Epigastric discomfort [Unknown]
  - Oesophageal ulcer [Unknown]
  - Scar [Unknown]
  - Irritable bowel syndrome [Not Recovered/Not Resolved]
  - Nausea [Recovered/Resolved]
  - Sinus disorder [Recovering/Resolving]
  - Renal disorder [Unknown]
  - Skin laceration [Recovering/Resolving]
  - Gastric disorder [Not Recovered/Not Resolved]

NARRATIVE: CASE EVENT DATE: 2019
